FAERS Safety Report 11256409 (Version 2)
Quarter: 2015Q3

REPORT INFORMATION
  Report Type: Spontaneous
  Country: US (occurrence: US)
  Receive Date: 20150709
  Receipt Date: 20150928
  Transmission Date: 20151125
  Serious: Yes (Other)
  Sender: FDA-Public Use
  Company Number: US-JNJFOC-20150702015

PATIENT
  Sex: Female

DRUGS (3)
  1. STELARA [Suspect]
     Active Substance: USTEKINUMAB
     Indication: PSORIASIS
     Route: 058
     Dates: start: 20150408, end: 201505
  2. BETAMETHASONE CREAM [Concomitant]
     Route: 065
     Dates: start: 201405, end: 201505
  3. METHOTREXATE [Concomitant]
     Active Substance: METHOTREXATE
     Route: 065
     Dates: start: 201009, end: 201505

REACTIONS (2)
  - Haemorrhoids [Not Recovered/Not Resolved]
  - Colon cancer [Not Recovered/Not Resolved]
